FAERS Safety Report 15587379 (Version 3)
Quarter: 2018Q4

REPORT INFORMATION
  Report Type: Spontaneous
  Country: PL (occurrence: PL)
  Receive Date: 20181105
  Receipt Date: 20181224
  Transmission Date: 20190205
  Serious: Yes (Other)
  Sender: FDA-Public Use
  Company Number: PL-ALLERGAN-1851981US

PATIENT

DRUGS (2)
  1. BUPROPION. [Suspect]
     Active Substance: BUPROPION
     Indication: PRODUCT USED FOR UNKNOWN INDICATION
     Route: 063
  2. ESCITALOPRAM OXALATE - BP [Suspect]
     Active Substance: ESCITALOPRAM OXALATE
     Indication: PRODUCT USED FOR UNKNOWN INDICATION
     Route: 063

REACTIONS (9)
  - Crying [Unknown]
  - Abdominal pain [Unknown]
  - Myoclonus [Unknown]
  - Sleep disorder [Unknown]
  - Seizure [Unknown]
  - Irritability [Unknown]
  - Agitation [Unknown]
  - Exposure via breast milk [Unknown]
  - Anxiety [Unknown]
